FAERS Safety Report 24720178 (Version 2)
Quarter: 2024Q4

REPORT INFORMATION
  Report Type: Report from Study
  Country: US (occurrence: US)
  Receive Date: 20241211
  Receipt Date: 20241226
  Transmission Date: 20250115
  Serious: Yes (Other)
  Sender: ROCHE
  Company Number: US-ROCHE-10000019693

PATIENT
  Age: 74 Year
  Sex: Female

DRUGS (3)
  1. XOLAIR [Suspect]
     Active Substance: OMALIZUMAB
     Indication: Urticaria thermal
     Dosage: VIAL
     Route: 058
  2. XOLAIR PFS [Suspect]
     Active Substance: OMALIZUMAB
     Indication: Urticaria thermal
     Dosage: INJECT 150 MILLIGRAMS SUBCUTANEOUSLY ONCE EVERY MONTH
     Route: 058
  3. XOLAIR PFS [Suspect]
     Active Substance: OMALIZUMAB

REACTIONS (3)
  - Arthralgia [Unknown]
  - Fall [Unknown]
  - Pelvic fracture [Unknown]
